FAERS Safety Report 17716137 (Version 2)
Quarter: 2020Q2

REPORT INFORMATION
  Report Type: Spontaneous
  Country: US (occurrence: US)
  Receive Date: 20200428
  Receipt Date: 20200430
  Transmission Date: 20200714
  Serious: No
  Sender: FDA-Public Use
  Company Number: US-TEVA-2020-US-1228327

PATIENT
  Sex: Male

DRUGS (2)
  1. AYR SALINE GEL [Suspect]
     Active Substance: SODIUM CHLORIDE
     Dosage: SALINE GEL
     Route: 045
  2. MUPIROCIN TEVA [Suspect]
     Active Substance: MUPIROCIN
     Route: 061

REACTIONS (3)
  - Off label use [Unknown]
  - Eye pruritus [Unknown]
  - Nasal crusting [Unknown]
